FAERS Safety Report 18958924 (Version 1)
Quarter: 2021Q1

REPORT INFORMATION
  Report Type: Report from Study
  Country: US (occurrence: US)
  Receive Date: 20210302
  Receipt Date: 20210302
  Transmission Date: 20210420
  Serious: Yes (Other)
  Sender: FDA-Public Use
  Company Number: US-GLAXOSMITHKLINE-US2021AMR008988

PATIENT
  Sex: Female

DRUGS (1)
  1. NIRAPARIB [Suspect]
     Active Substance: NIRAPARIB
     Indication: OVARIAN CANCER
     Dosage: 200 MG, QD
     Dates: start: 20201231, end: 20210126

REACTIONS (4)
  - Fatigue [Not Recovered/Not Resolved]
  - Abdominal distension [Unknown]
  - Platelet count decreased [Recovered/Resolved]
  - Recurrent cancer [Unknown]
